FAERS Safety Report 18628862 (Version 1)
Quarter: 2020Q4

REPORT INFORMATION
  Report Type: Spontaneous
  Country: FR (occurrence: FR)
  Receive Date: 20201217
  Receipt Date: 20201217
  Transmission Date: 20210114
  Serious: Yes (Hospitalization)
  Sender: FDA-Public Use
  Company Number: FR-PFIZER INC-2020492925

PATIENT
  Age: 80 Year
  Sex: Male

DRUGS (3)
  1. PIPERACILLIN/TAZOBACTAM [Suspect]
     Active Substance: PIPERACILLIN SODIUM\TAZOBACTAM SODIUM
     Indication: DIABETIC FOOT INFECTION
     Dosage: 18 G, DAILY
     Route: 042
     Dates: start: 20201113, end: 20201119
  2. SMECTA [Suspect]
     Active Substance: MONTMORILLONITE
     Indication: DIARRHOEA
     Dosage: UNK
     Route: 048
     Dates: start: 20201114, end: 20201122
  3. DALACINE [Suspect]
     Active Substance: CLINDAMYCIN
     Indication: DIABETIC FOOT INFECTION
     Dosage: 2400 MG, DAILY
     Route: 042
     Dates: start: 20201110, end: 20201119

REACTIONS (1)
  - Rash erythematous [Recovered/Resolved]

NARRATIVE: CASE EVENT DATE: 20201115
